FAERS Safety Report 16077376 (Version 1)
Quarter: 2019Q1

REPORT INFORMATION
  Report Type: Spontaneous
  Country: RS (occurrence: RS)
  Receive Date: 20190315
  Receipt Date: 20190315
  Transmission Date: 20190418
  Serious: Yes (Other)
  Sender: FDA-Public Use
  Company Number: PHHY2019RS056659

PATIENT
  Age: 7 Year
  Sex: Female
  Weight: 31 kg

DRUGS (1)
  1. LENDACIN [Suspect]
     Active Substance: CEFTRIAXONE SODIUM
     Indication: CHRONIC TONSILLITIS
     Dosage: 2 G, QD (1 PER 1 DAY)
     Route: 041
     Dates: start: 20190228

REACTIONS (2)
  - Dyspnoea [Recovered/Resolved]
  - Eyelid oedema [Recovered/Resolved]

NARRATIVE: CASE EVENT DATE: 20190228
